FAERS Safety Report 9409905 (Version 1)
Quarter: 2013Q3

REPORT INFORMATION
  Report Type: Spontaneous
  Country: US (occurrence: US)
  Receive Date: 20130719
  Receipt Date: 20130719
  Transmission Date: 20140515
  Serious: No
  Sender: FDA-Public Use
  Company Number: US-FOUGERA-2012FO001349

PATIENT
  Sex: Male
  Weight: 99.88 kg

DRUGS (2)
  1. CLOTRIMAZOLE AND BETAMETHASONE DIPROPIONATE [Suspect]
     Indication: TINEA CRURIS
     Dates: start: 20120828, end: 201209
  2. CLOTRIMAZOLE AND BETAMETHASONE DIPROPIONATE [Suspect]
     Indication: RASH

REACTIONS (1)
  - Drug ineffective [Recovered/Resolved]
